FAERS Safety Report 25990044 (Version 3)
Quarter: 2025Q4

REPORT INFORMATION
  Report Type: Report from Study
  Country: KR (occurrence: KR)
  Receive Date: 20251103
  Receipt Date: 20251212
  Transmission Date: 20260118
  Serious: Yes (Hospitalization)
  Sender: BAYER HEALTHCARE PHARMACEUTICALS INC.
  Company Number: KR-BAYER-2025A143389

PATIENT
  Age: 67 Year
  Sex: Male

DRUGS (23)
  1. FINERENONE [Suspect]
     Active Substance: FINERENONE
     Dosage: 10 MG, QD
     Dates: start: 20250312
  2. FINERENONE [Suspect]
     Active Substance: FINERENONE
     Dosage: UNK
     Dates: start: 20250724, end: 20250728
  3. FINERENONE [Suspect]
     Active Substance: FINERENONE
     Dosage: 10 MG, QD
     Dates: start: 20250729
  4. INSULIN ASPART [Concomitant]
     Active Substance: INSULIN ASPART
     Indication: Type 2 diabetes mellitus
     Dosage: UNK
     Dates: start: 20250722
  5. XIGDUO XR [Concomitant]
     Active Substance: DAPAGLIFLOZIN PROPANEDIOL\METFORMIN HYDROCHLORIDE
     Indication: Type 2 diabetes mellitus
     Dosage: UNK
     Dates: start: 20240925
  6. METFORMIN [Concomitant]
     Active Substance: METFORMIN HYDROCHLORIDE
     Indication: Type 2 diabetes mellitus
     Dosage: 500 MG
     Dates: start: 20240925
  7. Pletaal sr [Concomitant]
     Dosage: 200 MG
     Dates: start: 20250205
  8. ARICEPT [Concomitant]
     Active Substance: DONEPEZIL HYDROCHLORIDE
     Dosage: 2.5 MG
     Dates: start: 20250312, end: 20250422
  9. ARICEPT [Concomitant]
     Active Substance: DONEPEZIL HYDROCHLORIDE
     Dosage: 5 MG
     Dates: start: 20250423
  10. EDARBI [Concomitant]
     Active Substance: AZILSARTAN KAMEDOXOMIL
     Dosage: 20 MG
     Dates: start: 20240807
  11. Dilatrend sr [Concomitant]
     Dosage: 8 MG
     Dates: start: 20240807
  12. Febuxon [Concomitant]
     Indication: Chronic kidney disease
     Dosage: UNK
     Dates: start: 20241106
  13. CRESTOR [Concomitant]
     Active Substance: ROSUVASTATIN CALCIUM
     Dosage: 10 MG
     Dates: start: 20240207
  14. LASIX [Concomitant]
     Active Substance: FUROSEMIDE
     Indication: Chronic kidney disease
     Dosage: 20 MG
     Dates: start: 20241106, end: 20250421
  15. LASIX [Concomitant]
     Active Substance: FUROSEMIDE
     Indication: Chronic kidney disease
     Dosage: 40 MG
     Dates: start: 20250423
  16. EZETIMIBE [Concomitant]
     Active Substance: EZETIMIBE
     Dosage: 10 MG
     Dates: start: 20250423
  17. TAMOXIFEN CITRATE [Concomitant]
     Active Substance: TAMOXIFEN CITRATE
     Indication: Gynaecomastia
     Dosage: 20 MG
     Dates: start: 20250422
  18. Nexierd [Concomitant]
     Indication: Prophylaxis
     Dosage: 20 MG
     Dates: start: 20250422
  19. Nexierd [Concomitant]
     Indication: Immunisation
  20. HUMALOG MIX75/25 [Concomitant]
     Active Substance: INSULIN LISPRO
     Indication: Type 2 diabetes mellitus
     Dosage: UNK
     Dates: start: 20250723, end: 20251021
  21. HUMALOG MIX75/25 [Concomitant]
     Active Substance: INSULIN LISPRO
     Indication: Type 2 diabetes mellitus
     Dosage: UNK
     Dates: start: 20251022
  22. METFORMIN [Concomitant]
     Active Substance: METFORMIN HYDROCHLORIDE
     Indication: Type 2 diabetes mellitus
     Dosage: 500 MG
  23. Valsarect [Concomitant]

REACTIONS (1)
  - Chronic kidney disease [Recovered/Resolved]

NARRATIVE: CASE EVENT DATE: 20250724
